FAERS Safety Report 24066158 (Version 1)
Quarter: 2024Q3

REPORT INFORMATION
  Report Type: Spontaneous
  Country: FR (occurrence: None)
  Receive Date: 20240709
  Receipt Date: 20240709
  Transmission Date: 20241017
  Serious: Yes (Hospitalization, Other)
  Sender: ASTRAZENECA
  Company Number: 2024A156301

PATIENT
  Age: 72 Year
  Sex: Female

DRUGS (1)
  1. DURVALUMAB [Suspect]
     Active Substance: DURVALUMAB
     Indication: Non-small cell lung cancer
     Dates: start: 20220107, end: 20220204

REACTIONS (10)
  - Malignant neoplasm progression [Unknown]
  - Hepatic cytolysis [Unknown]
  - Pancreatitis [Unknown]
  - Toxicity to various agents [Unknown]
  - Hyperthyroidism [Unknown]
  - Asthenia [Unknown]
  - Oesophagitis [Unknown]
  - Dyspnoea [Unknown]
  - Cough [Unknown]
  - Off label use [Unknown]
